FAERS Safety Report 4852599-9 (Version None)
Quarter: 2005Q4

REPORT INFORMATION
  Report Type: 
  Country: None (occurrence: None)
  Receive Date: 20051213
  Receipt Date: 20051114
  Transmission Date: 20060501
  Serious: Yes (Other)
  Sender: FDA-Public Use
  Company Number: PHFR2005GB03739

PATIENT
  Age: 58 Year
  Sex: Female
  Weight: 43 kg

DRUGS (15)
  1. ELIDEL [Suspect]
     Indication: DERMATITIS
     Dosage: UNK, UNK
     Route: 061
     Dates: start: 20051005
  2. PROPRANOLOL HYDROCHLORIDE [Concomitant]
     Dosage: 80 MG, TID
     Route: 065
  3. DIFFLAM [Concomitant]
     Dosage: UNK, TID
     Route: 061
  4. FORCEVAL [Concomitant]
     Dosage: 1 CAPSULE DAILY
     Route: 065
  5. SENNA [Concomitant]
     Dosage: 7.5 MG QID/NOCTE
     Route: 065
  6. WARFARIN SODIUM [Concomitant]
     Dosage: 3MG
  7. WARFARIN SODIUM [Concomitant]
     Dosage: 1 MG/DAY
  8. CO-CODAMOL [Concomitant]
     Dosage: 1-2 TABLETS QID, PRN
     Route: 065
  9. FLUTICASONE PROPIONATE [Concomitant]
     Dosage: 1 SPRAY ON EACH SIDE/QD
  10. PROPANTHELINE BROMIDE [Concomitant]
     Dosage: 15 MG, 5QD
     Route: 065
  11. VENLAFAXINE HYDROCHLORIDE [Concomitant]
     Dosage: 75 MG, TID
     Route: 065
  12. TIBOLONE [Concomitant]
     Dosage: 2.5 MG, QD
     Route: 065
  13. BENDROFLUMETHIAZIDE [Concomitant]
     Dosage: 5 MG/EVERY MORNING
     Route: 065
  14. NITRAZEPAM [Concomitant]
     Dosage: 5 MG, QD2SDO NOCTE
     Route: 065
  15. PROCYCLIDINE [Concomitant]
     Dosage: 5 MG, PRN
     Route: 065

REACTIONS (7)
  - ANAPHYLACTOID REACTION [None]
  - APPLICATION SITE DERMATITIS [None]
  - APPLICATION SITE ERYTHEMA [None]
  - APPLICATION SITE IRRITATION [None]
  - APPLICATION SITE SWELLING [None]
  - EYE IRRITATION [None]
  - EYE SWELLING [None]
